FAERS Safety Report 21960905 (Version 1)
Quarter: 2023Q1

REPORT INFORMATION
  Report Type: Spontaneous
  Country: US (occurrence: US)
  Receive Date: 20230207
  Receipt Date: 20230207
  Transmission Date: 20230417
  Serious: No
  Sender: FDA-Public Use
  Company Number: US-SA-SAC20230131001494

PATIENT
  Sex: Female

DRUGS (1)
  1. DUPIXENT [Suspect]
     Active Substance: DUPILUMAB
     Indication: Neurodermatitis
     Dosage: 300 MG, QOW
     Route: 058
     Dates: start: 20221027

REACTIONS (5)
  - Blood cholesterol increased [Unknown]
  - Periorbital swelling [Unknown]
  - Dry skin [Unknown]
  - Eyelids pruritus [Unknown]
  - Eye pruritus [Unknown]
